FAERS Safety Report 9800646 (Version 1)
Quarter: 2014Q1

REPORT INFORMATION
  Report Type: Spontaneous
  Country: US (occurrence: US)
  Receive Date: 20140107
  Receipt Date: 20140107
  Transmission Date: 20141002
  Serious: Yes (Death)
  Sender: FDA-Public Use
  Company Number: US-BRISTOL-MYERS SQUIBB COMPANY-19964030

PATIENT
  Age: 49 Year
  Sex: Female

DRUGS (5)
  1. ETOPOPHOS [Suspect]
     Indication: SMALL CELL LUNG CANCER
  2. NEULASTA [Concomitant]
  3. DEXAMETHASONE [Concomitant]
  4. AMBIEN [Concomitant]
  5. PREDNISONE [Concomitant]

REACTIONS (1)
  - Death [Fatal]
